FAERS Safety Report 8086767-2 (Version None)
Quarter: 2012Q1

REPORT INFORMATION
  Report Type: 
  Country: None (occurrence: None)
  Receive Date: 20120128
  Receipt Date: 20110613
  Transmission Date: 20120608
  Serious: No
  Sender: FDA-Public Use
  Company Number: US-ABBOTT-11P-163-0732110-00

PATIENT
  Age: 27 Year
  Sex: Male

DRUGS (5)
  1. MEDICATION SIMILAR TO IBUPROFEN [Concomitant]
     Indication: PRODUCT USED FOR UNKNOWN INDICATION
  2. DEPAKOTE [Concomitant]
     Indication: PRODUCT USED FOR UNKNOWN INDICATION
  3. EFFEXOR [Concomitant]
     Indication: PRODUCT USED FOR UNKNOWN INDICATION
  4. TRAMADOL HCL [Concomitant]
     Indication: PRODUCT USED FOR UNKNOWN INDICATION
  5. HUMIRA [Suspect]
     Indication: RHEUMATOID ARTHRITIS
     Dates: start: 20100601

REACTIONS (5)
  - INJECTION SITE WARMTH [None]
  - ILL-DEFINED DISORDER [None]
  - INJECTION SITE OEDEMA [None]
  - INJECTION SITE MASS [None]
  - INJECTION SITE HAEMATOMA [None]
